FAERS Safety Report 10227893 (Version 1)
Quarter: 2014Q2

REPORT INFORMATION
  Report Type: Spontaneous
  Country: US (occurrence: None)
  Receive Date: 20140609
  Receipt Date: 20140609
  Transmission Date: 20141212
  Serious: Yes (Death)
  Sender: FDA-Public Use
  Company Number: None

PATIENT
  Age: 74 Year
  Sex: Female

DRUGS (7)
  1. POMALYST [Suspect]
     Indication: PLASMA CELL MYELOMA
     Dosage: 4MG DAILY X21/28D BY MOUTH
     Route: 048
     Dates: start: 201310
  2. DEXAMETHASONE [Concomitant]
  3. FUROSEMIDE [Concomitant]
  4. MVI [Concomitant]
  5. KCL [Concomitant]
  6. SENNA [Concomitant]
  7. LACTULOSE [Concomitant]

REACTIONS (1)
  - Death [None]
